FAERS Safety Report 5754930-9 (Version None)
Quarter: 2008Q2

REPORT INFORMATION
  Report Type: 
  Country: None (occurrence: None)
  Receive Date: 20080527
  Receipt Date: 20080507
  Transmission Date: 20081010
  Serious: Yes (Hospitalization)
  Sender: FDA-Public Use
  Company Number: 2008AL004066

PATIENT
  Sex: Male

DRUGS (1)
  1. DIGOXIN [Suspect]
     Dates: start: 20080301, end: 20080417

REACTIONS (4)
  - HYPOTENSION [None]
  - LABORATORY TEST ABNORMAL [None]
  - NAUSEA [None]
  - VOMITING [None]
